FAERS Safety Report 18988332 (Version 1)
Quarter: 2021Q1

REPORT INFORMATION
  Report Type: Spontaneous
  Country: US (occurrence: US)
  Receive Date: 20210309
  Receipt Date: 20210309
  Transmission Date: 20210420
  Serious: Yes (Other)
  Sender: FDA-Public Use
  Company Number: US-UPSHER-SMITH LABORATORIES, LLC-2021USL00080

PATIENT
  Age: 65 Year
  Sex: Female
  Weight: 74.83 kg

DRUGS (29)
  1. JANTOVEN [Suspect]
     Active Substance: WARFARIN SODIUM
     Indication: ANTIPHOSPHOLIPID ANTIBODIES
  2. JANTOVEN [Suspect]
     Active Substance: WARFARIN SODIUM
     Indication: SYSTEMIC LUPUS ERYTHEMATOSUS
  3. JANTOVEN [Suspect]
     Active Substance: WARFARIN SODIUM
     Indication: CHRONIC KIDNEY DISEASE
  4. JANTOVEN [Suspect]
     Active Substance: WARFARIN SODIUM
     Indication: PROTEIN C DEFICIENCY
  5. ALLOPURINOL. [Concomitant]
     Active Substance: ALLOPURINOL
     Dosage: UNK
     Dates: end: 202008
  6. JANTOVEN [Suspect]
     Active Substance: WARFARIN SODIUM
     Indication: ANTITHROMBIN III DEFICIENCY
  7. JANTOVEN [Suspect]
     Active Substance: WARFARIN SODIUM
     Indication: FACTOR IX DEFICIENCY
     Dosage: TITRATED BETWEEN 3 AND 5.5 MG, 1X/DAY NIGHTLY
     Dates: end: 20210223
  8. MAGNESIUM OXIDE. [Concomitant]
     Active Substance: MAGNESIUM OXIDE
     Dosage: 400 MG, 1X/DAY
  9. DEXAMETHASONE. [Concomitant]
     Active Substance: DEXAMETHASONE
     Dosage: DOSES RANGING FROM 16MG DOWN TO 1MG OVER 2 WEEKS
  10. JANTOVEN [Suspect]
     Active Substance: WARFARIN SODIUM
     Indication: FACTOR IX DEFICIENCY
     Dosage: TITRATED BETWEEN 3 AND 5.5 MG, 1X/DAY NIGHTLY
     Dates: end: 20210223
  11. JANTOVEN [Suspect]
     Active Substance: WARFARIN SODIUM
     Indication: CHRONIC KIDNEY DISEASE
  12. ALLOPURINOL. [Suspect]
     Active Substance: ALLOPURINOL
     Dosage: 300 MG, 1X/DAY
     Dates: start: 202008
  13. COLCHICINE. [Concomitant]
     Active Substance: COLCHICINE
     Dosage: 1.2 MG, 1X/DAY
  14. VITAMIN D [Concomitant]
     Active Substance: VITAMIN D NOS
     Dosage: 3000 U, 1X/DAY
  15. LANSOPRAZOLE. [Concomitant]
     Active Substance: LANSOPRAZOLE
     Dosage: 15 MG, 2X/DAY AS NEEDED
  16. DEXAMETHASONE. [Concomitant]
     Active Substance: DEXAMETHASONE
     Dosage: SHORTER COURSE WITH LOWER DOSING BETWEEN 1 TO 4MG FOR ADVERSE DRUG REACTIONS
  17. ZOMIG [Concomitant]
     Active Substance: ZOLMITRIPTAN
  18. TORSEMIDE. [Concomitant]
     Active Substance: TORSEMIDE
     Dosage: 140 MG, 1X/DAY
  19. KLOR?CON [Concomitant]
     Active Substance: POTASSIUM CHLORIDE
  20. JANTOVEN [Suspect]
     Active Substance: WARFARIN SODIUM
     Indication: ANTITHROMBIN III DEFICIENCY
  21. JANTOVEN [Suspect]
     Active Substance: WARFARIN SODIUM
     Indication: SYSTEMIC LUPUS ERYTHEMATOSUS
  22. TRIAMTERENE/HYDROCHLOROTHIAZIDE [Concomitant]
     Active Substance: HYDROCHLOROTHIAZIDE\TRIAMTERENE
     Dosage: 37.5/25 MG, 2X/DAY
  23. EFFER?K [Concomitant]
     Dosage: 40 TO 120 MEQ, 1X/DAY
  24. TYLENOL WITH CODEINE [Concomitant]
     Active Substance: ACETAMINOPHEN\CODEINE PHOSPHATE
     Dosage: 325/60 MG, AS NEEDED
  25. JANTOVEN [Suspect]
     Active Substance: WARFARIN SODIUM
     Indication: PROTEIN C DEFICIENCY
  26. JANTOVEN [Suspect]
     Active Substance: WARFARIN SODIUM
     Indication: ANTIPHOSPHOLIPID ANTIBODIES
  27. TRADJENTA [Suspect]
     Active Substance: LINAGLIPTIN
     Dosage: UNK
  28. CLARITHROMYCIN. [Suspect]
     Active Substance: CLARITHROMYCIN
     Dosage: UNK
     Dates: start: 20210218, end: 202102
  29. TYLENOL EXTRA STRENGTH [Concomitant]
     Active Substance: ACETAMINOPHEN
     Dosage: 500 MG, EVERY 6 HOURS

REACTIONS (9)
  - Formication [Recovering/Resolving]
  - Pruritus [Not Recovered/Not Resolved]
  - Dyspnoea [Recovering/Resolving]
  - Reaction to excipient [Recovered/Resolved]
  - Urticaria [Recovered/Resolved]
  - Palpitations [Recovering/Resolving]
  - Abscess [Unknown]
  - Unevaluable event [Not Recovered/Not Resolved]
  - Paraesthesia [Recovering/Resolving]

NARRATIVE: CASE EVENT DATE: 202008
